FAERS Safety Report 18252294 (Version 3)
Quarter: 2021Q1

REPORT INFORMATION
  Report Type: Spontaneous
  Country: US (occurrence: US)
  Receive Date: 20200910
  Receipt Date: 20210315
  Transmission Date: 20210419
  Serious: No
  Sender: FDA-Public Use
  Company Number: US-FARMAPROD-202006-0758

PATIENT
  Age: 60 Year
  Sex: Female

DRUGS (9)
  1. OXERVATE [Suspect]
     Active Substance: CENEGERMIN-BKBJ
     Indication: NEUROTROPHIC KERATOPATHY
     Route: 047
     Dates: start: 20200512, end: 20200715
  2. SOOTHE [Concomitant]
     Active Substance: BISMUTH SUBSALICYLATE\GLYCERIN\PROPYLENE GLYCOL
     Dosage: 262MG/15ML
  3. TRIFLURIDINE. [Concomitant]
     Active Substance: TRIFLURIDINE
     Indication: OPHTHALMIC HERPES SIMPLEX
     Route: 047
     Dates: start: 20200528, end: 20200720
  4. CYRAMZA [Concomitant]
     Active Substance: RAMUCIRUMAB
     Dosage: 100MG/10ML VIAL
  5. ABRAXANE [Concomitant]
     Active Substance: PACLITAXEL
     Dosage: VIAL
  6. ZOFRAN [Concomitant]
     Active Substance: ONDANSETRON HYDROCHLORIDE
  7. OMEPRAZOLE. [Concomitant]
     Active Substance: OMEPRAZOLE
  8. ATIVAN [Concomitant]
     Active Substance: LORAZEPAM
  9. AMLODIPINE BESILATE [Concomitant]
     Active Substance: AMLODIPINE BESYLATE

REACTIONS (3)
  - Eye irritation [Unknown]
  - Eye discharge [Recovered/Resolved]
  - Ophthalmic herpes simplex [Unknown]

NARRATIVE: CASE EVENT DATE: 20200528
